FAERS Safety Report 18688478 (Version 2)
Quarter: 2021Q1

REPORT INFORMATION
  Report Type: Report from Study
  Country: US (occurrence: US)
  Receive Date: 20201231
  Receipt Date: 20210119
  Transmission Date: 20210419
  Serious: No
  Sender: FDA-Public Use
  Company Number: US-KYOWAKIRIN-2020BKK022893

PATIENT

DRUGS (3)
  1. ZITHROMAX [Concomitant]
     Active Substance: AZITHROMYCIN DIHYDRATE
     Indication: TOOTH DISORDER
     Dosage: UNK
     Route: 065
     Dates: start: 20210104, end: 20210111
  2. CRYSVITA [Suspect]
     Active Substance: BUROSUMAB-TWZA
     Indication: HEREDITARY HYPOPHOSPHATAEMIC RICKETS
     Dosage: 50 MG (2 INJECTIONS), 1X/2 WEEKS
     Route: 058
     Dates: start: 20180919
  3. CRYSVITA [Suspect]
     Active Substance: BUROSUMAB-TWZA
     Indication: HEREDITARY HYPOPHOSPHATAEMIC RICKETS
     Dosage: 50 MG (2 INJECTIONS), 1X/2 WEEKS
     Route: 058
     Dates: start: 20180919

REACTIONS (2)
  - Injection site discomfort [Not Recovered/Not Resolved]
  - Injection site pain [Not Recovered/Not Resolved]

NARRATIVE: CASE EVENT DATE: 20180919
